FAERS Safety Report 12064943 (Version 1)
Quarter: 2016Q1

REPORT INFORMATION
  Report Type: Spontaneous
  Country: US (occurrence: US)
  Receive Date: 20160210
  Receipt Date: 20160210
  Transmission Date: 20160526
  Serious: No
  Sender: FDA-Public Use
  Company Number: US-BIOGEN-2016BI00174937

PATIENT
  Sex: Female

DRUGS (2)
  1. PLEGRIDY [Interacting]
     Active Substance: PEGINTERFERON BETA-1A
     Dates: start: 20140424, end: 20141030
  2. PLEGRIDY [Suspect]
     Active Substance: PEGINTERFERON BETA-1A
     Indication: MULTIPLE SCLEROSIS

REACTIONS (1)
  - Pain in extremity [Not Recovered/Not Resolved]
